FAERS Safety Report 11840508 (Version 1)
Quarter: 2015Q4

REPORT INFORMATION
  Report Type: Not Available
  Country: DE (occurrence: BR)
  Receive Date: 20151216
  Receipt Date: 20151216
  Transmission Date: 20160305
  Serious: Yes (Other)
  Sender: FDA-Public Use
  Company Number: DE-ANIPHARMA-2015-BR-000002

PATIENT
  Age: 65 Year
  Sex: Male
  Weight: 95 kg

DRUGS (6)
  1. GABAPENTIN. [Suspect]
     Active Substance: GABAPENTIN
     Dosage: 600MG EACH MORNING 300 MG NIGHTLY
     Route: 048
  2. DIURIT [Concomitant]
     Dosage: UNK
     Route: 065
  3. FLUVOXAMINE MALEATE 100 MG [Suspect]
     Active Substance: FLUVOXAMINE MALEATE
     Dosage: 50 MG TWICE DAILY
     Route: 048
  4. RIVOTRIL [Concomitant]
     Active Substance: CLONAZEPAM
     Dosage: 1 MG EACH MORNING, 3 MG NIGHTLY
     Route: 048
  5. FRISIUM [Concomitant]
     Active Substance: CLOBAZAM
     Dosage: 10 MG DAILY
     Route: 048
  6. LOSARTAN. [Concomitant]
     Active Substance: LOSARTAN
     Dosage: 50 MG DAILY
     Route: 048

REACTIONS (14)
  - Malaise [Unknown]
  - Type 2 diabetes mellitus [Unknown]
  - Wrong technique in product usage process [Unknown]
  - Endodontic procedure [Unknown]
  - Chronic kidney disease [Unknown]
  - Muscle mass [Unknown]
  - Somnolence [Unknown]
  - Cataract [Unknown]
  - Panic disorder [Unknown]
  - Anxiety [Unknown]
  - Drug ineffective [Unknown]
  - Hypoaesthesia oral [Unknown]
  - Weight decreased [Unknown]
  - Blood creatine decreased [Unknown]

NARRATIVE: CASE EVENT DATE: 20140101
